FAERS Safety Report 7801994-4 (Version None)
Quarter: 2011Q4

REPORT INFORMATION
  Report Type: 
  Country: None (occurrence: None)
  Receive Date: 20111007
  Receipt Date: 20111003
  Transmission Date: 20120403
  Serious: Yes (Other)
  Sender: FDA-Public Use
  Company Number: PHEH2011US04275

PATIENT
  Sex: Female
  Weight: 60.5 kg

DRUGS (6)
  1. PREDNISONE [Concomitant]
     Indication: HAEMOLYTIC ANAEMIA
     Dosage: 5 MG, UNK
     Route: 048
  2. EXJADE [Suspect]
     Indication: IRON OVERLOAD
  3. FOLIC ACID [Concomitant]
     Indication: HAEMOLYTIC ANAEMIA
     Dosage: 1 MG, UNK
     Route: 048
  4. OMEPRAZOLE [Concomitant]
     Indication: GASTROOESOPHAGEAL REFLUX DISEASE
     Dosage: 20 MG, UNK
     Route: 048
     Dates: start: 20110818
  5. EXJADE [Suspect]
     Indication: ANAEMIA HAEMOLYTIC AUTOIMMUNE
     Dosage: 1000 MG, QD
     Route: 048
     Dates: start: 20090702, end: 20110811
  6. BENICAR [Concomitant]
     Indication: HYPERTENSION
     Dosage: 40 MG, UNK
     Route: 048

REACTIONS (1)
  - IRON DEFICIENCY [None]
